FAERS Safety Report 8394945-8 (Version None)
Quarter: 2012Q2

REPORT INFORMATION
  Report Type: 
  Country: None (occurrence: None)
  Receive Date: 20120530
  Receipt Date: 20111021
  Transmission Date: 20120825
  Serious: No
  Sender: FDA-Public Use
  Company Number: US-GLAXOSMITHKLINE-A0950342A

PATIENT
  Age: 47 Year
  Sex: Female
  Weight: 85 kg

DRUGS (2)
  1. LETAIRIS [Concomitant]
     Indication: PRODUCT USED FOR UNKNOWN INDICATION
     Dosage: 5MG PER DAY
     Route: 065
  2. FLOLAN [Suspect]
     Indication: PULMONARY HYPERTENSION
     Dosage: 19NGKM UNKNOWN
     Route: 042
     Dates: start: 20100919

REACTIONS (2)
  - FLUSHING [None]
  - DIARRHOEA [None]
